FAERS Safety Report 23162587 (Version 1)
Quarter: 2023Q4

REPORT INFORMATION
  Report Type: Report from Study
  Country: US (occurrence: None)
  Receive Date: 20231109
  Receipt Date: 20231109
  Transmission Date: 20240110
  Serious: Yes (Hospitalization)
  Sender: FDA-Public Use
  Company Number: 2023A250086

PATIENT
  Age: 64 Year
  Sex: Male
  Weight: 103.7 kg

DRUGS (25)
  1. CALQUENCE [Suspect]
     Active Substance: ACALABRUTINIB
     Indication: B-cell small lymphocytic lymphoma
     Route: 048
     Dates: start: 20230623
  2. ALBUTEROL [Concomitant]
     Active Substance: ALBUTEROL
  3. ATORVASTATIN [Concomitant]
     Active Substance: ATORVASTATIN
  4. ATROVENT [Concomitant]
     Active Substance: IPRATROPIUM BROMIDE
  5. AZITHROMYCIN [Concomitant]
     Active Substance: AZITHROMYCIN
  6. BEVESPI AEROSPHERE [Concomitant]
     Active Substance: FORMOTEROL FUMARATE\GLYCOPYRROLATE
  7. CARVEDILOL [Concomitant]
     Active Substance: CARVEDILOL
  8. DEXAMETHASONE [Concomitant]
     Active Substance: DEXAMETHASONE
  9. DILAUDID [Concomitant]
     Active Substance: HYDROMORPHONE HYDROCHLORIDE
  10. DOXYCYCLINE [Concomitant]
     Active Substance: DOXYCYCLINE
  11. ENTRESTO [Concomitant]
     Active Substance: SACUBITRIL\VALSARTAN
  12. FLOVENT [Concomitant]
     Active Substance: FLUTICASONE PROPIONATE
  13. FUROSEMIDE [Concomitant]
     Active Substance: FUROSEMIDE
  14. IPRATROPIUM [Concomitant]
     Active Substance: IPRATROPIUM
  15. LACTO BIFIDUS [Concomitant]
  16. NORCO [Concomitant]
     Active Substance: ACETAMINOPHEN\HYDROCODONE BITARTRATE
  17. ONDANSETRON [Concomitant]
     Active Substance: ONDANSETRON
  18. PANTOPRAZOLE [Concomitant]
     Active Substance: PANTOPRAZOLE
  19. PROPOFOL [Concomitant]
     Active Substance: PROPOFOL
  20. SEREVENT DISKUS [Concomitant]
     Active Substance: SALMETEROL XINAFOATE
  21. SPIRIVA [Concomitant]
     Active Substance: TIOTROPIUM BROMIDE MONOHYDRATE
  22. BACTRIM [Concomitant]
     Active Substance: SULFAMETHOXAZOLE\TRIMETHOPRIM
  23. TRAMADOL [Concomitant]
     Active Substance: TRAMADOL\TRAMADOL HYDROCHLORIDE
  24. TYLENOL [Concomitant]
     Active Substance: ACETAMINOPHEN
  25. XARELTO [Concomitant]
     Active Substance: RIVAROXABAN

REACTIONS (3)
  - Blood blister [Recovering/Resolving]
  - Haemoptysis [Recovering/Resolving]
  - Dyspnoea [Recovering/Resolving]

NARRATIVE: CASE EVENT DATE: 20231031
